FAERS Safety Report 8326950-1 (Version None)
Quarter: 2012Q2

REPORT INFORMATION
  Report Type: 
  Country: None (occurrence: None)
  Receive Date: 20120501
  Receipt Date: 20120418
  Transmission Date: 20120825
  Serious: Yes (Other)
  Sender: FDA-Public Use
  Company Number: TN-MYLANLABS-2012S1008364

PATIENT
  Age: 4 Decade
  Sex: Male

DRUGS (4)
  1. MYCOPHENOLIC ACID [Concomitant]
     Indication: IMMUNOSUPPRESSANT DRUG THERAPY
     Dosage: 1500 MG/DAY
     Route: 065
  2. PREDNISONE [Concomitant]
     Indication: IMMUNOSUPPRESSANT DRUG THERAPY
     Dosage: 10 MG/DAY
     Route: 065
  3. THEOPHYLLINE [Interacting]
     Indication: POLYCYTHAEMIA
     Dosage: 300 MG/DAY
     Route: 065
     Dates: start: 20090601
  4. TACROLIMUS [Suspect]
     Indication: IMMUNOSUPPRESSANT DRUG THERAPY
     Dosage: 10 MG/DAY
     Route: 065

REACTIONS (4)
  - RENAL IMPAIRMENT [None]
  - DRUG INTERACTION [None]
  - POLYCYTHAEMIA [None]
  - IMMUNOSUPPRESSANT DRUG LEVEL INCREASED [None]
